FAERS Safety Report 6438371-7 (Version None)
Quarter: 2009Q4

REPORT INFORMATION
  Report Type: 
  Country: None (occurrence: None)
  Receive Date: 20091112
  Receipt Date: 20091029
  Transmission Date: 20100525
  Serious: Yes (Life-Threatening, Hospitalization)
  Sender: FDA-Public Use
  Company Number: DE-MYLANLABS-2008S1021254

PATIENT
  Age: 83 Year
  Sex: Female

DRUGS (9)
  1. BISOPROLOL [Suspect]
     Indication: CORONARY ARTERY DISEASE
     Route: 048
  2. RAMIPRIL [Interacting]
     Indication: CARDIAC FAILURE
     Route: 048
  3. PROTAPHAN /00646002/ [Interacting]
     Indication: TYPE 2 DIABETES MELLITUS
     Route: 058
     Dates: start: 20070701, end: 20080410
  4. ACTRAPID [Interacting]
     Indication: TYPE 2 DIABETES MELLITUS
     Route: 058
     Dates: start: 20070701, end: 20080410
  5. LACTULOSE [Concomitant]
     Indication: CONSTIPATION
     Route: 048
  6. FURORESE [Concomitant]
     Indication: RENAL FAILURE
     Route: 048
  7. PREGABALIN [Concomitant]
     Indication: DIABETIC NEUROPATHY
     Route: 048
  8. XIPAMIDE [Concomitant]
     Indication: CARDIAC FAILURE
     Route: 048
  9. ALLOPURINOL [Concomitant]
     Indication: HYPERURICAEMIA
     Route: 048

REACTIONS (2)
  - DRUG INTERACTION [None]
  - HYPOGLYCAEMIA [None]
